FAERS Safety Report 18629438 (Version 2)
Quarter: 2020Q4

REPORT INFORMATION
  Report Type: Spontaneous
  Country: CN (occurrence: CN)
  Receive Date: 20201217
  Receipt Date: 20201223
  Transmission Date: 20210114
  Serious: Yes (Other)
  Sender: FDA-Public Use
  Company Number: CN-BAYER-2020-277802

PATIENT
  Age: 32 Year
  Sex: Male

DRUGS (1)
  1. KOVALTRY [Suspect]
     Active Substance: ANTIHEMOPHILIC FACTOR, HUMAN RECOMBINANT
     Indication: FACTOR VIII DEFICIENCY
     Dosage: INJECTION

REACTIONS (1)
  - Procedural haemorrhage [Recovered/Resolved]

NARRATIVE: CASE EVENT DATE: 201506
